FAERS Safety Report 22171018 (Version 1)
Quarter: 2023Q2

REPORT INFORMATION
  Report Type: Spontaneous
  Country: US (occurrence: None)
  Receive Date: 20230403
  Receipt Date: 20230403
  Transmission Date: 20230722
  Serious: Yes (Other)
  Sender: FDA-Public Use
  Company Number: None

PATIENT
  Age: 32 Month
  Sex: Female

DRUGS (1)
  1. MIRALAX [Suspect]
     Active Substance: POLYETHYLENE GLYCOL 3350
     Indication: Constipation
     Dates: start: 20230323, end: 20230401

REACTIONS (10)
  - Diarrhoea [None]
  - Pyrexia [None]
  - Hypophagia [None]
  - Therapy cessation [None]
  - Behaviour disorder [None]
  - Anger [None]
  - Crying [None]
  - Dysphemia [None]
  - Aphasia [None]
  - Eye movement disorder [None]

NARRATIVE: CASE EVENT DATE: 20230401
